FAERS Safety Report 5877086-0 (Version None)
Quarter: 2008Q3

REPORT INFORMATION
  Report Type: 
  Country: None (occurrence: None)
  Receive Date: 20080910
  Receipt Date: 20080904
  Transmission Date: 20090109
  Serious: Yes (Death, Hospitalization, Other)
  Sender: FDA-Public Use
  Company Number: PHHY2008JP10467

PATIENT
  Sex: Male

DRUGS (4)
  1. VOLTAREN [Suspect]
     Indication: ARTHRALGIA
     Dosage: 75 MG/DAY
     Route: 048
     Dates: start: 20070110, end: 20070115
  2. LANIRAPID [Suspect]
     Indication: ATRIAL FIBRILLATION
     Dosage: 0.1 MG/DAY
     Route: 048
     Dates: end: 20070115
  3. LASIX [Concomitant]
     Indication: CARDIAC FAILURE CHRONIC
     Dosage: 40 MG UNK
     Route: 048
     Dates: end: 20070121
  4. ALOSITOL [Concomitant]
     Indication: HYPERURICAEMIA
     Dosage: 100 MG UNK
     Route: 048
     Dates: end: 20070115

REACTIONS (22)
  - ANOREXIA [None]
  - ATRIAL CONDUCTION TIME PROLONGATION [None]
  - ATRIAL FIBRILLATION [None]
  - BLOOD CREATININE INCREASED [None]
  - BLOOD POTASSIUM INCREASED [None]
  - BLOOD PRESSURE IMMEASURABLE [None]
  - BLOOD UREA INCREASED [None]
  - BRADYCARDIA [None]
  - BRAIN NATRIURETIC PEPTIDE INCREASED [None]
  - DEHYDRATION [None]
  - DYSPNOEA [None]
  - HEART RATE DECREASED [None]
  - HEART RATE IRREGULAR [None]
  - HYPOTENSION [None]
  - LISTLESS [None]
  - OXYGEN SATURATION IMMEASURABLE [None]
  - RENAL FAILURE ACUTE [None]
  - RENAL IMPAIRMENT [None]
  - RESPIRATORY ARREST [None]
  - RESPIRATORY DISTRESS [None]
  - RESUSCITATION [None]
  - THERAPEUTIC AGENT TOXICITY [None]
